FAERS Safety Report 17851828 (Version 3)
Quarter: 2020Q3

REPORT INFORMATION
  Report Type: Spontaneous
  Country: US (occurrence: US)
  Receive Date: 20200602
  Receipt Date: 20200715
  Transmission Date: 20201103
  Serious: No
  Sender: FDA-Public Use
  Company Number: US-PFIZER INC-2015391925

PATIENT
  Age: 47 Year
  Sex: Female
  Weight: 95.25 kg

DRUGS (5)
  1. ASPIRIN [ACETYLSALICYLIC ACID] [Concomitant]
     Active Substance: ASPIRIN
     Indication: THROMBOSIS PROPHYLAXIS
     Dosage: 81 MG, 1X/DAY (81MG 1 TABLET BY MOUTH ONCE A DAY)
     Route: 048
  2. PREMARIN [Suspect]
     Active Substance: ESTROGENS, CONJUGATED
     Dosage: UNK
     Dates: start: 1995
  3. METOPROLOL. [Concomitant]
     Active Substance: METOPROLOL
     Indication: HYPERTENSION
     Dosage: 25 MG, 1X/DAY (25MG 1 TABLET BY MOUTH ONCE A DAY)
     Route: 048
  4. PREMARIN [Suspect]
     Active Substance: ESTROGENS, CONJUGATED
     Dosage: 0.625 MG, ALTERNATE DAY (1 TABLET BY MOUTH EVERY OTHER DAY)
     Route: 048
     Dates: start: 20200528
  5. BABY ASPIRIN [Concomitant]
     Active Substance: ASPIRIN
     Indication: THROMBOSIS PROPHYLAXIS
     Dosage: UNK, 1X/DAY

REACTIONS (6)
  - Off label use [Unknown]
  - Product use in unapproved indication [Unknown]
  - Hot flush [Unknown]
  - Intentional dose omission [Unknown]
  - Overweight [Unknown]
  - Intentional product misuse [Unknown]

NARRATIVE: CASE EVENT DATE: 20200528
